FAERS Safety Report 11999630 (Version 1)
Quarter: 2016Q1

REPORT INFORMATION
  Report Type: Report from Study
  Country: US (occurrence: US)
  Receive Date: 20160204
  Receipt Date: 20160204
  Transmission Date: 20160526
  Serious: Yes (Other)
  Sender: FDA-Public Use
  Company Number: US-ACCORD-037550

PATIENT
  Age: 18 Year
  Sex: Female

DRUGS (10)
  1. METHOTREXATE [Suspect]
     Active Substance: METHOTREXATE
     Indication: ACUTE LYMPHOCYTIC LEUKAEMIA
     Route: 037
  2. LEVOTHYROXINE. [Concomitant]
     Active Substance: LEVOTHYROXINE
  3. MACROGOL [Concomitant]
     Active Substance: POLYETHYLENE GLYCOLS
  4. VORICONAZOLE. [Concomitant]
     Active Substance: VORICONAZOLE
  5. MERCAPTOPURINE/MERCAPTOPURINE ANHYDROUS [Concomitant]
  6. FOLINIC ACID [Concomitant]
     Active Substance: LEUCOVORIN
  7. HYDROCODONE/PARACETAMOL [Concomitant]
  8. ONDANSETRON [Concomitant]
     Active Substance: ONDANSETRON
  9. VINCRISTINE [Concomitant]
     Active Substance: VINCRISTINE
  10. RANITIDINE [Concomitant]
     Active Substance: RANITIDINE\RANITIDINE HYDROCHLORIDE

REACTIONS (2)
  - Muscular weakness [Unknown]
  - Neurotoxicity [Unknown]
